FAERS Safety Report 4653130-3 (Version None)
Quarter: 2005Q2

REPORT INFORMATION
  Report Type: 
  Country: None (occurrence: None)
  Receive Date: 20050502
  Receipt Date: 20050502
  Transmission Date: 20051028
  Serious: Yes (Other)
  Sender: FDA-Public Use
  Company Number: None

PATIENT
  Sex: Male
  Weight: 106.5953 kg

DRUGS (2)
  1. OMEPRAZOLE [Suspect]
     Indication: GASTROOESOPHAGEAL REFLUX DISEASE
     Dosage: 20 MG    ONCE DAILY  ORAL
     Route: 048
     Dates: start: 20040117, end: 20040119
  2. OMEPRAZOLE [Suspect]
     Indication: HIATUS HERNIA
     Dosage: 20 MG    ONCE DAILY  ORAL
     Route: 048
     Dates: start: 20040117, end: 20040119

REACTIONS (2)
  - MEDICATION ERROR [None]
  - THERAPEUTIC PRODUCT INEFFECTIVE [None]
